FAERS Safety Report 16969851 (Version 1)
Quarter: 2019Q4

REPORT INFORMATION
  Report Type: Spontaneous
  Country: FR (occurrence: FR)
  Receive Date: 20191029
  Receipt Date: 20191029
  Transmission Date: 20200122
  Serious: Yes (Hospitalization)
  Sender: FDA-Public Use
  Company Number: FR-TEVA-2018-FR-913952

PATIENT
  Age: 72 Year
  Sex: Female

DRUGS (2)
  1. FURADANTINE [Suspect]
     Active Substance: NITROFURANTOIN
     Route: 048
     Dates: end: 20081103
  2. FURADANTINE [Suspect]
     Active Substance: NITROFURANTOIN
     Indication: URINARY TRACT INFECTION
     Route: 048

REACTIONS (3)
  - Lung disorder [Unknown]
  - Hepatic enzyme increased [Recovered/Resolved]
  - Hepatocellular injury [Recovered/Resolved]

NARRATIVE: CASE EVENT DATE: 20081105
